FAERS Safety Report 23300074 (Version 1)
Quarter: 2023Q4

REPORT INFORMATION
  Report Type: Report from Study
  Country: US (occurrence: US)
  Receive Date: 20231215
  Receipt Date: 20231215
  Transmission Date: 20240110
  Serious: Yes (Other)
  Sender: FDA-Public Use
  Company Number: US-ABBVIE-5375751

PATIENT
  Sex: Female
  Weight: 68 kg

DRUGS (3)
  1. HUMIRA [Suspect]
     Active Substance: ADALIMUMAB
     Indication: Psoriatic arthropathy
     Dosage: LAST ADMIN DATE: 2023
     Route: 058
     Dates: start: 20230228
  2. HUMIRA [Suspect]
     Active Substance: ADALIMUMAB
     Route: 058
     Dates: start: 20231010
  3. OTEZLA [Suspect]
     Active Substance: APREMILAST
     Indication: Product used for unknown indication
     Route: 065

REACTIONS (10)
  - Loss of consciousness [Unknown]
  - Psoriatic arthropathy [Recovering/Resolving]
  - Pain in extremity [Unknown]
  - Sjogren^s syndrome [Not Recovered/Not Resolved]
  - Vision blurred [Unknown]
  - Renal disorder [Recovering/Resolving]
  - Bladder disorder [Recovering/Resolving]
  - Nocturia [Unknown]
  - Joint range of motion decreased [Unknown]
  - Hypotension [Unknown]

NARRATIVE: CASE EVENT DATE: 20230101
